FAERS Safety Report 5697601-X (Version None)
Quarter: 2008Q2

REPORT INFORMATION
  Report Type: 
  Country: None (occurrence: None)
  Receive Date: 20080408
  Receipt Date: 20080326
  Transmission Date: 20081010
  Serious: Yes (Other)
  Sender: FDA-Public Use
  Company Number: US-PFIZER INC-2008023246

PATIENT
  Sex: Female
  Weight: 77.272 kg

DRUGS (6)
  1. CHANTIX [Suspect]
     Indication: SMOKING CESSATION THERAPY
  2. HALOPERIDOL [Concomitant]
     Indication: SCHIZOAFFECTIVE DISORDER
  3. TRIHEXYPHENIDYL HCL [Concomitant]
     Indication: SCHIZOAFFECTIVE DISORDER
  4. DOXEPIN HCL [Concomitant]
     Indication: SCHIZOAFFECTIVE DISORDER
  5. AMLODIPINE [Concomitant]
     Indication: HYPERTENSION
  6. POTASSIUM CHLORIDE [Concomitant]

REACTIONS (1)
  - RAYNAUD'S PHENOMENON [None]
